FAERS Safety Report 4308884-2 (Version None)
Quarter: 2004Q1

REPORT INFORMATION
  Report Type: 
  Country: None (occurrence: None)
  Receive Date: 20040302
  Receipt Date: 20040223
  Transmission Date: 20041129
  Serious: Yes (Life-Threatening, Other)
  Sender: FDA-Public Use
  Company Number: PHFR2004GB01100

PATIENT
  Age: 19 Year
  Sex: Female

DRUGS (1)
  1. CLOZARIL [Suspect]
     Indication: SCHIZOPHRENIA
     Dosage: 125MG MANE + 225MG NOCTE
     Route: 048
     Dates: start: 20021217

REACTIONS (3)
  - EMOTIONAL DISTRESS [None]
  - TOXIC SHOCK SYNDROME [None]
  - WHITE BLOOD CELL COUNT DECREASED [None]
